FAERS Safety Report 10143244 (Version 1)
Quarter: 2014Q2

REPORT INFORMATION
  Report Type: Spontaneous
  Country: BE (occurrence: None)
  Receive Date: 20140428
  Receipt Date: 20140428
  Transmission Date: 20141212
  Serious: Yes (Other)
  Sender: FDA-Public Use
  Company Number: SYM-2014-20015

PATIENT
  Age: 46 Year
  Sex: Female

DRUGS (3)
  1. FLAGYL [Suspect]
     Indication: GENITAL INFECTION FEMALE
     Route: 048
     Dates: start: 20140215
  2. EFEXOR (VENLAFAXINE HYDROCHLORIDE) [Concomitant]
  3. OMEPRAZOLE [Concomitant]

REACTIONS (2)
  - Hepatitis toxic [None]
  - Jaundice [None]
